FAERS Safety Report 20361213 (Version 1)
Quarter: 2022Q1

REPORT INFORMATION
  Report Type: Spontaneous
  Country: US (occurrence: None)
  Receive Date: 20220121
  Receipt Date: 20220121
  Transmission Date: 20220424
  Serious: Yes (Hospitalization)
  Sender: FDA-Public Use
  Company Number: US-ROCHE-3004841

PATIENT
  Age: 1 Month
  Sex: Male
  Weight: 1.3 kg

DRUGS (4)
  1. ALTEPLASE [Suspect]
     Active Substance: ALTEPLASE
     Indication: Product used for unknown indication
     Route: 065
     Dates: end: 20211008
  2. OMEGAVEN [Suspect]
     Active Substance: FISH OIL
     Indication: Bilirubin conjugated abnormal
     Dosage: 1G/KG
     Route: 065
     Dates: start: 20210917
  3. IRON DEXTRAN [Suspect]
     Active Substance: IRON DEXTRAN
     Indication: Product used for unknown indication
     Route: 065
  4. SMOFLIPID [Concomitant]
     Active Substance: FISH OIL\MEDIUM-CHAIN TRIGLYCERIDES\OLIVE OIL\SOYBEAN OIL

REACTIONS (2)
  - Blood bilirubin increased [Unknown]
  - Drug ineffective [Unknown]

NARRATIVE: CASE EVENT DATE: 20211002
